FAERS Safety Report 20575638 (Version 2)
Quarter: 2025Q4

REPORT INFORMATION
  Report Type: Spontaneous
  Country: GB (occurrence: None)
  Receive Date: 20220310
  Receipt Date: 20251125
  Transmission Date: 20260118
  Serious: Yes (Hospitalization, Other)
  Sender: AUROBINDO
  Company Number: CA-AUROBINDO-AUR-APL-2013-09615

PATIENT
  Age: 79 Year
  Sex: Male

DRUGS (21)
  1. CITALOPRAM [Suspect]
     Active Substance: CITALOPRAM
     Indication: Dementia Alzheimer^s type
     Dosage: 20 MILLIGRAM, ONCE A DAY
     Route: 065
  2. CITALOPRAM [Suspect]
     Active Substance: CITALOPRAM
     Indication: Agitation
  3. DONEPEZIL [Suspect]
     Active Substance: DONEPEZIL
     Indication: Dementia Alzheimer^s type
     Dosage: 10 MILLIGRAM, ONCE A DAY
     Route: 065
     Dates: start: 200705
  4. DONEPEZIL [Suspect]
     Active Substance: DONEPEZIL
     Indication: Agitation
  5. GABAPENTIN [Suspect]
     Active Substance: GABAPENTIN
     Indication: Aggression
     Dosage: 900 MILLIGRAM, ONCE A DAY
     Route: 065
  6. OLANZAPINE [Suspect]
     Active Substance: OLANZAPINE
     Indication: Aggression
     Dosage: UNK
     Route: 065
  7. QUETIAPINE [Suspect]
     Active Substance: QUETIAPINE
     Indication: Dementia Alzheimer^s type
     Dosage: UNK
     Route: 065
  8. QUETIAPINE [Suspect]
     Active Substance: QUETIAPINE
     Indication: Aggression
  9. ARICEPT [Suspect]
     Active Substance: DONEPEZIL HYDROCHLORIDE
     Indication: Dementia Alzheimer^s type
     Dosage: 10 MILLIGRAM, ONCE A DAY
     Route: 065
  10. ARICEPT [Suspect]
     Active Substance: DONEPEZIL HYDROCHLORIDE
     Indication: Agitation
  11. HALOPERIDOL [Suspect]
     Active Substance: HALOPERIDOL
     Indication: Agitation
     Dosage: UNK
     Route: 065
  12. HALOPERIDOL [Suspect]
     Active Substance: HALOPERIDOL
     Indication: Aggression
  13. MEMANTINE [Suspect]
     Active Substance: MEMANTINE
     Indication: Dementia Alzheimer^s type
     Dosage: 20 MG,TWO TIMES A DAY,
     Route: 065
  14. MEMANTINE [Suspect]
     Active Substance: MEMANTINE
     Indication: Dementia
  15. RISPERIDONE [Suspect]
     Active Substance: RISPERIDONE
     Indication: Dementia
     Dosage: 2 MG,TWO TIMES A DAY,
  16. RISPERIDONE [Suspect]
     Active Substance: RISPERIDONE
     Indication: Agitation
  17. TRYPTOPHAN [Suspect]
     Active Substance: TRYPTOPHAN
     Indication: Dementia
     Dosage: UNK UNK,UNK,
  18. TRYPTOPHAN [Suspect]
     Active Substance: TRYPTOPHAN
     Indication: Agitation
  19. VALPROIC ACID [Suspect]
     Active Substance: VALPROIC ACID
     Indication: Aggression
     Dosage: UNK
     Route: 065
  20. NABILONE [Concomitant]
     Active Substance: NABILONE
     Indication: Agitation
     Dosage: 0.5 MILLIGRAM, ONCE A DAY
     Route: 065
  21. NABILONE [Concomitant]
     Active Substance: NABILONE
     Dosage: 0.5 MILLIGRAM, TWO TIMES A DAY
     Route: 065

REACTIONS (11)
  - Delirium [Recovered/Resolved]
  - Dementia [Unknown]
  - Aggression [Unknown]
  - Contusion [Unknown]
  - Irritability [Unknown]
  - Petechiae [Unknown]
  - Skin disorder [Unknown]
  - Akathisia [Unknown]
  - Abnormal behaviour [Unknown]
  - Therapeutic product effect incomplete [Unknown]
  - Drug ineffective [Unknown]
